FAERS Safety Report 9069475 (Version 2)
Quarter: 2013Q3

REPORT INFORMATION
  Report Type: Spontaneous
  Country: DE (occurrence: DE)
  Receive Date: 20130215
  Receipt Date: 20130723
  Transmission Date: 20140515
  Serious: Yes (Other)
  Sender: FDA-Public Use
  Company Number: DE-BRISTOL-MYERS SQUIBB COMPANY-17343047

PATIENT
  Sex: Male

DRUGS (1)
  1. ELIQUIS [Suspect]
     Indication: ATRIAL FIBRILLATION
     Dosage: TABS
     Route: 048

REACTIONS (6)
  - Laceration [Unknown]
  - Haemorrhage [Recovered/Resolved]
  - Somnolence [Unknown]
  - Feeling abnormal [Unknown]
  - Local swelling [Unknown]
  - Dizziness [Unknown]
